FAERS Safety Report 18447135 (Version 1)
Quarter: 2020Q4

REPORT INFORMATION
  Report Type: Spontaneous
  Country: US (occurrence: US)
  Receive Date: 20201030
  Receipt Date: 20201030
  Transmission Date: 20210114
  Serious: Yes (Other)
  Sender: FDA-Public Use
  Company Number: None

PATIENT
  Age: 64 Year
  Sex: Female
  Weight: 74.84 kg

DRUGS (1)
  1. ALBUTEROL SULFATE INHALER [Suspect]
     Active Substance: ALBUTEROL SULFATE
     Indication: ASTHMA
     Dates: start: 20200401, end: 20201030

REACTIONS (3)
  - Device malfunction [None]
  - Drug ineffective [None]
  - Dyspnoea [None]

NARRATIVE: CASE EVENT DATE: 20201026
